FAERS Safety Report 9391019 (Version 1)
Quarter: 2013Q3

REPORT INFORMATION
  Report Type: Spontaneous
  Country: BR (occurrence: BR)
  Receive Date: 20130709
  Receipt Date: 20130709
  Transmission Date: 20140515
  Serious: Yes (Death)
  Sender: FDA-Public Use
  Company Number: BR-BAYER-2013-081198

PATIENT
  Age: 58 Year
  Sex: Male

DRUGS (1)
  1. NEXAVAR [Suspect]
     Dosage: 4 DF, QD
     Route: 048
     Dates: start: 201207, end: 201305

REACTIONS (3)
  - Hepatic cancer [Fatal]
  - Malignant splenic neoplasm [Fatal]
  - Oncologic complication [Fatal]
